FAERS Safety Report 24047152 (Version 4)
Quarter: 2025Q1

REPORT INFORMATION
  Report Type: Spontaneous
  Country: US (occurrence: US)
  Receive Date: 20240703
  Receipt Date: 20250217
  Transmission Date: 20250408
  Serious: No
  Sender: NOVARTIS
  Company Number: US-002147023-NVSC2024US137525

PATIENT
  Sex: Male

DRUGS (4)
  1. TAFINLAR [Suspect]
     Active Substance: DABRAFENIB MESYLATE
     Indication: Neoplasm malignant
     Dosage: 100 MG BID (FEEDING TUBE)
     Route: 065
     Dates: start: 202406
  2. TAFINLAR [Suspect]
     Active Substance: DABRAFENIB MESYLATE
     Indication: Thyroid cancer
  3. MEKINIST [Suspect]
     Active Substance: TRAMETINIB DIMETHYL SULFOXIDE
     Indication: Neoplasm malignant
     Dosage: 40 ML, QD (FEEDING TUBE) (0.05MG/ML)
     Route: 065
     Dates: start: 202406
  4. MEKINIST [Suspect]
     Active Substance: TRAMETINIB DIMETHYL SULFOXIDE
     Indication: Thyroid cancer
     Dosage: 30 ML, QD (FEEDING TUBE)
     Route: 065
     Dates: start: 202406

REACTIONS (4)
  - Dry skin [Unknown]
  - Joint swelling [Unknown]
  - Dysphagia [Unknown]
  - Visual impairment [Unknown]
